FAERS Safety Report 5855337-6 (Version None)
Quarter: 2008Q3

REPORT INFORMATION
  Report Type: 
  Country: None (occurrence: None)
  Receive Date: 20080821
  Receipt Date: 20080812
  Transmission Date: 20090109
  Serious: No
  Sender: FDA-Public Use
  Company Number: US024361

PATIENT

DRUGS (4)
  1. FENTORA [Suspect]
     Indication: BACK PAIN
     Dosage: 400 AND 800 MCG
  2. ACTIQ [Concomitant]
  3. FENTANYL-25 [Concomitant]
  4. OXYCONTIN [Concomitant]

REACTIONS (2)
  - DRUG PRESCRIBING ERROR [None]
  - MEDICATION ERROR [None]
